FAERS Safety Report 17397503 (Version 1)
Quarter: 2020Q1

REPORT INFORMATION
  Report Type: Spontaneous
  Country: HR (occurrence: HR)
  Receive Date: 20200210
  Receipt Date: 20200210
  Transmission Date: 20200409
  Serious: Yes (Other)
  Sender: FDA-Public Use
  Company Number: HR-US-PROVELL PHARMACEUTICALS LLC-E2B_90074649

PATIENT
  Age: 16 Year
  Sex: Female
  Weight: 80 kg

DRUGS (1)
  1. EUTHYROX [Suspect]
     Active Substance: LEVOTHYROXINE SODIUM
     Indication: THYROIDECTOMY
     Route: 048
     Dates: start: 201902

REACTIONS (9)
  - Depression [Recovering/Resolving]
  - Abdominal pain upper [Recovering/Resolving]
  - Palpitations [Recovering/Resolving]
  - Disturbance in attention [Recovering/Resolving]
  - Headache [Recovering/Resolving]
  - Depressed mood [Recovering/Resolving]
  - Weight abnormal [Recovering/Resolving]
  - Diarrhoea [Recovering/Resolving]
  - Fatigue [Recovering/Resolving]

NARRATIVE: CASE EVENT DATE: 20190202
